FAERS Safety Report 10355875 (Version 12)
Quarter: 2021Q3

REPORT INFORMATION
  Report Type: Other
  Country: CA (occurrence: CA)
  Receive Date: 20140801
  Receipt Date: 20210929
  Transmission Date: 20211014
  Serious: Yes (Hospitalization, Other)
  Sender: FDA-Public Use
  Company Number: CA-ROCHE-1443690

PATIENT
  Age: 20 Year
  Sex: Female
  Weight: 68 kg

DRUGS (7)
  1. XOLAIR [Suspect]
     Active Substance: OMALIZUMAB
     Route: 058
     Dates: start: 20160330, end: 20170310
  2. XOLAIR [Suspect]
     Active Substance: OMALIZUMAB
     Indication: ASTHMA
     Route: 058
     Dates: start: 20081008
  3. XOLAIR [Suspect]
     Active Substance: OMALIZUMAB
     Route: 058
     Dates: start: 20180324
  4. XOLAIR [Suspect]
     Active Substance: OMALIZUMAB
     Route: 058
  5. XOLAIR [Suspect]
     Active Substance: OMALIZUMAB
     Route: 058
     Dates: start: 20180707, end: 20180821
  6. XOLAIR [Suspect]
     Active Substance: OMALIZUMAB
     Route: 058
     Dates: start: 20170310
  7. XOLAIR [Suspect]
     Active Substance: OMALIZUMAB
     Route: 058
     Dates: start: 20210414

REACTIONS (14)
  - Hypokinesia [Unknown]
  - Weight decreased [Unknown]
  - Asthma [Unknown]
  - Hiatus hernia [Unknown]
  - Road traffic accident [Unknown]
  - Vomiting [Unknown]
  - Injection site hyperaesthesia [Unknown]
  - Weight increased [Unknown]
  - Hepatic pain [Unknown]
  - Hand fracture [Unknown]
  - Lung disorder [Recovering/Resolving]
  - Pneumonia [Unknown]
  - Nausea [Unknown]
  - Condition aggravated [Unknown]

NARRATIVE: CASE EVENT DATE: 20140724
